FAERS Safety Report 14421134 (Version 14)
Quarter: 2020Q3

REPORT INFORMATION
  Report Type: Report from Study
  Country: US (occurrence: US)
  Receive Date: 20180122
  Receipt Date: 20200825
  Transmission Date: 20201102
  Serious: Yes (Hospitalization)
  Sender: FDA-Public Use
  Company Number: US-ACTELION-A-US2017-155776

PATIENT
  Age: 30 Year
  Sex: Female
  Weight: 77.1 kg

DRUGS (14)
  1. ONDANSETRON [Concomitant]
     Active Substance: ONDANSETRON
  2. TADALAFIL. [Concomitant]
     Active Substance: TADALAFIL
  3. OPSUMIT [Suspect]
     Active Substance: MACITENTAN
     Dosage: 10 MG, QD
     Route: 048
  4. OPSUMIT [Suspect]
     Active Substance: MACITENTAN
     Dosage: 10 MG, QD
     Route: 048
  5. OPSUMIT [Suspect]
     Active Substance: MACITENTAN
     Dosage: UNK
     Route: 048
  6. CHLORAPREP [Suspect]
     Active Substance: CHLORHEXIDINE GLUCONATE\ISOPROPYL ALCOHOL
     Indication: WOUND
     Route: 003
  7. WARFARIN [Concomitant]
     Active Substance: WARFARIN
  8. POVIDONE?IODINE. [Concomitant]
     Active Substance: POVIDONE-IODINE
  9. OPSUMIT [Suspect]
     Active Substance: MACITENTAN
     Indication: PULMONARY ARTERIAL HYPERTENSION
     Dosage: 10 MG, QD
     Route: 048
  10. REMODULIN [Suspect]
     Active Substance: TREPROSTINIL
     Indication: PRODUCT USED FOR UNKNOWN INDICATION
     Dosage: 43 NG/KG, PER MIN
     Route: 042
  11. ADCIRCA [Concomitant]
     Active Substance: TADALAFIL
  12. REMODULIN [Suspect]
     Active Substance: TREPROSTINIL
     Dosage: UNK
     Route: 042
  13. XARELTO [Concomitant]
     Active Substance: RIVAROXABAN
  14. ORENITRAM [Suspect]
     Active Substance: TREPROSTINIL
     Indication: PRODUCT USED FOR UNKNOWN INDICATION
     Dosage: 6.25 MG, TID
     Route: 048
     Dates: start: 20170908

REACTIONS (41)
  - Vascular device infection [Unknown]
  - Application site rash [Unknown]
  - Catheter site irritation [Not Recovered/Not Resolved]
  - Catheter site dryness [Unknown]
  - Catheter site pruritus [Unknown]
  - Catheter site vesicles [Unknown]
  - Flushing [Unknown]
  - Dizziness [Unknown]
  - Diarrhoea [Unknown]
  - Pruritus [Unknown]
  - Dry skin [Unknown]
  - Decreased appetite [Unknown]
  - Migraine [Unknown]
  - Menstrual disorder [Unknown]
  - Dyspnoea [Unknown]
  - Feeling hot [Unknown]
  - Pulmonary arterial pressure increased [Unknown]
  - Cough [Not Recovered/Not Resolved]
  - Application site vesicles [Unknown]
  - Application site hypersensitivity [Unknown]
  - Pain in extremity [Unknown]
  - Staphylococcal infection [Unknown]
  - Catheter site rash [Unknown]
  - Catheter site discharge [Unknown]
  - Rash [Recovering/Resolving]
  - Nasal congestion [Unknown]
  - Infusion site discolouration [Unknown]
  - Dyspepsia [Unknown]
  - Multiple allergies [Unknown]
  - Catheter site erythema [Unknown]
  - Catheter site pain [Unknown]
  - Vomiting [Unknown]
  - Headache [Unknown]
  - Epistaxis [Unknown]
  - Pain [Unknown]
  - Pyrexia [Unknown]
  - Nausea [Unknown]
  - Catheter site swelling [Unknown]
  - Gastrooesophageal reflux disease [Unknown]
  - Underdose [Unknown]
  - Back pain [Unknown]

NARRATIVE: CASE EVENT DATE: 20170906
